FAERS Safety Report 9147366 (Version 2)
Quarter: 2013Q2

REPORT INFORMATION
  Report Type: Spontaneous
  Country: US (occurrence: US)
  Receive Date: 20130307
  Receipt Date: 20130409
  Transmission Date: 20140414
  Serious: Yes (Death, Hospitalization)
  Sender: FDA-Public Use
  Company Number: US-GLAXOSMITHKLINE-A1014877A

PATIENT
  Age: 41 Year
  Sex: Male

DRUGS (15)
  1. VOTRIENT [Suspect]
     Indication: PRODUCT USED FOR UNKNOWN INDICATION
     Dosage: 600MG PER DAY
     Route: 048
     Dates: start: 20121112, end: 20130226
  2. VENTILATION [Concomitant]
  3. ELAVIL [Concomitant]
  4. BENZOYL PEROXIDE [Concomitant]
  5. NEURONTIN [Concomitant]
  6. LEVAQUIN [Concomitant]
  7. XYLOCAINE [Concomitant]
  8. MEGACE [Concomitant]
  9. MORPHINE [Concomitant]
  10. MORPHINE [Concomitant]
  11. ZOFRAN [Concomitant]
  12. PHENERGAN [Concomitant]
  13. SEPTRA DS [Concomitant]
  14. XENADERM [Concomitant]
  15. EMLA [Concomitant]

REACTIONS (7)
  - Disease progression [Fatal]
  - Respiratory failure [Unknown]
  - Metastases to lung [Unknown]
  - Dyspnoea [Unknown]
  - Drug ineffective [Unknown]
  - Palmar-plantar erythrodysaesthesia syndrome [Unknown]
  - Liver function test abnormal [Unknown]
